FAERS Safety Report 4373461-4 (Version None)
Quarter: 2004Q1

REPORT INFORMATION
  Report Type: 
  Country: None (occurrence: None)
  Receive Date: 20040305
  Receipt Date: 20031216
  Transmission Date: 20041129
  Serious: Yes (Other)
  Sender: FDA-Public Use
  Company Number: 2003UW16785

PATIENT
  Age: 52 Year
  Sex: Female
  Weight: 59.4212 kg

DRUGS (6)
  1. CRESTOR [Suspect]
     Indication: BLOOD CHOLESTEROL INCREASED
     Dosage: 10 MG HS PO
     Route: 048
     Dates: start: 20031101
  2. CRESTOR [Suspect]
     Indication: BLOOD TRIGLYCERIDES INCREASED
     Dosage: 10 MG HS PO
     Route: 048
     Dates: start: 20031101
  3. LOPRESSOR [Concomitant]
  4. ASPIRIN [Concomitant]
  5. MULTI-VITAMINS [Concomitant]
  6. CALCIUM [Concomitant]

REACTIONS (2)
  - HEART RATE INCREASED [None]
  - WEIGHT INCREASED [None]
